FAERS Safety Report 19657903 (Version 2)
Quarter: 2021Q3

REPORT INFORMATION
  Report Type: Spontaneous
  Country: AR (occurrence: AR)
  Receive Date: 20210804
  Receipt Date: 20210810
  Transmission Date: 20211014
  Serious: Yes (Other)
  Sender: FDA-Public Use
  Company Number: AR-ORGANON-O2108ARG000129

PATIENT
  Age: 17 Year
  Sex: Female

DRUGS (1)
  1. IMPLANON NXT [Suspect]
     Active Substance: ETONOGESTREL
     Dosage: 1 IMPLANT, LEFT ARM
     Route: 059

REACTIONS (5)
  - Product use issue [Unknown]
  - Device placement issue [Unknown]
  - Device use issue [Unknown]
  - Overdose [Unknown]
  - Chronic kidney disease [Unknown]
